FAERS Safety Report 5812665-8 (Version None)
Quarter: 2008Q3

REPORT INFORMATION
  Report Type: 
  Country: None (occurrence: None)
  Receive Date: 20080711
  Receipt Date: 20080627
  Transmission Date: 20090109
  Serious: Yes (Hospitalization)
  Sender: FDA-Public Use
  Company Number: 2008SP001483

PATIENT
  Age: 88 Year
  Sex: Female

DRUGS (5)
  1. XOPENEX [Suspect]
     Dosage: 1.25 MG/3ML; TID; INHALATION; 1.25 MG/3ML; QID; INHALATION; 1.25 MG/3ML; QD; INHALATION
     Route: 055
     Dates: start: 20080601
  2. ALLERGY MEDICATION [Concomitant]
  3. VERAPAMIL [Concomitant]
  4. LASIX [Concomitant]
  5. BROVANA [Concomitant]

REACTIONS (4)
  - ASTHMA [None]
  - COUGH [None]
  - RESPIRATORY TRACT INFECTION [None]
  - RHINORRHOEA [None]
